FAERS Safety Report 4333644-6 (Version None)
Quarter: 2004Q2

REPORT INFORMATION
  Report Type: 
  Country: None (occurrence: None)
  Receive Date: 20040406
  Receipt Date: 20040406
  Transmission Date: 20050107
  Serious: Yes (Other)
  Sender: FDA-Public Use
  Company Number: None

PATIENT
  Age: 81 Year
  Sex: Female

DRUGS (17)
  1. TEQUIN [Suspect]
     Indication: BRONCHITIS
     Dosage: 400 MG ONE QD X 10 DAYS
  2. DARVOCET [Concomitant]
  3. M.V.I. [Concomitant]
  4. LORAZEPAM [Concomitant]
  5. SYNTHROID [Concomitant]
  6. NITROGLYCERIN [Concomitant]
  7. CALCIUM [Concomitant]
  8. NASONEX [Concomitant]
  9. PREVACID [Concomitant]
  10. PREMAIN CREAM [Concomitant]
  11. ALLEGRA [Concomitant]
  12. ZOLOFT [Concomitant]
  13. DILTIAZEM HCL [Concomitant]
  14. ECOTRIN [Concomitant]
  15. PLAVIX [Concomitant]
  16. .. [Concomitant]
  17. LIPITOR [Concomitant]

REACTIONS (1)
  - DIABETES MELLITUS [None]
